FAERS Safety Report 15200663 (Version 1)
Quarter: 2018Q3

REPORT INFORMATION
  Report Type: Spontaneous
  Country: IT (occurrence: IT)
  Receive Date: 20180726
  Receipt Date: 20180726
  Transmission Date: 20181010
  Serious: Yes (Other)
  Sender: FDA-Public Use
  Company Number: IT-TEVA-2018-IT-930092

PATIENT
  Age: 87 Year
  Sex: Female

DRUGS (4)
  1. LOPRESSOR [Concomitant]
     Active Substance: METOPROLOL TARTRATE
     Route: 065
  2. COUMADIN [Concomitant]
     Active Substance: WARFARIN SODIUM
     Indication: ARRHYTHMIA PROPHYLAXIS
     Dosage: 5 MILLIGRAM DAILY;
  3. KANRENOL [Concomitant]
     Active Substance: CANRENOATE POTASSIUM
     Dosage: 100 MILLIGRAM DAILY;
  4. FUROSEMIDE. [Suspect]
     Active Substance: FUROSEMIDE
     Dosage: 25 MILLIGRAM DAILY;

REACTIONS (2)
  - Hypokalaemia [Recovered/Resolved]
  - Hyponatraemic syndrome [Recovered/Resolved]

NARRATIVE: CASE EVENT DATE: 20180624
